FAERS Safety Report 7099376-9 (Version None)
Quarter: 2010Q4

REPORT INFORMATION
  Report Type: 
  Country: None (occurrence: None)
  Receive Date: 20101112
  Receipt Date: 20090420
  Transmission Date: 20110411
  Serious: No
  Sender: FDA-Public Use
  Company Number: US-KINGPHARMUSA00001-K200900468

PATIENT
  Sex: Female

DRUGS (4)
  1. SKELAXIN [Suspect]
     Dosage: UNK
  2. BUTALBITAL ACETAMINOPHEN AND CAFFEINE [Suspect]
     Dosage: UNK
  3. HYDROCODONE BITARTRATE AND ACETAMINOPHEN [Suspect]
     Dosage: UNK
  4. FENTANYL-100 [Suspect]
     Dosage: UNK
     Route: 062

REACTIONS (1)
  - PRURITUS [None]
